FAERS Safety Report 17682139 (Version 4)
Quarter: 2020Q4

REPORT INFORMATION
  Report Type: Report from Study
  Country: US (occurrence: US)
  Receive Date: 20200418
  Receipt Date: 20201014
  Transmission Date: 20210113
  Serious: Yes (Hospitalization, Other)
  Sender: FDA-Public Use
  Company Number: US-SHIRE-US202013823

PATIENT
  Sex: Male
  Weight: 54.42 kg

DRUGS (8)
  1. GATTEX [Suspect]
     Active Substance: TEDUGLUTIDE\WATER
     Dosage: 0.1800 UNIT UNKNOWN, 1X/DAY:QD
     Route: 058
     Dates: start: 20200318
  2. GATTEX [Suspect]
     Active Substance: TEDUGLUTIDE\WATER
     Dosage: 0.1800 UNIT UNKNOWN, 1X/DAY:QD
     Route: 058
     Dates: start: 20200318
  3. GATTEX [Suspect]
     Active Substance: TEDUGLUTIDE\WATER
     Indication: CONGENITAL MEGACOLON
     Dosage: 0.27 MILLIGRAM, 1X/DAY:QD
     Route: 058
  4. GATTEX [Suspect]
     Active Substance: TEDUGLUTIDE\WATER
     Dosage: 0.1800 UNIT UNKNOWN, 1X/DAY:QD
     Route: 058
     Dates: start: 20200318
  5. GATTEX [Suspect]
     Active Substance: TEDUGLUTIDE\WATER
     Dosage: 0.1800 UNIT UNKNOWN, 1X/DAY:QD
     Route: 058
     Dates: start: 20200318
  6. GATTEX [Suspect]
     Active Substance: TEDUGLUTIDE\WATER
     Indication: CONGENITAL MEGACOLON
     Dosage: 0.27 MILLIGRAM, 1X/DAY:QD
     Route: 058
  7. GATTEX [Suspect]
     Active Substance: TEDUGLUTIDE\WATER
     Indication: CONGENITAL MEGACOLON
     Dosage: 0.27 MILLIGRAM, 1X/DAY:QD
     Route: 058
  8. GATTEX [Suspect]
     Active Substance: TEDUGLUTIDE\WATER
     Indication: CONGENITAL MEGACOLON
     Dosage: 0.27 MILLIGRAM, 1X/DAY:QD
     Route: 058

REACTIONS (4)
  - Urine output increased [Not Recovered/Not Resolved]
  - Weight increased [Not Recovered/Not Resolved]
  - Vascular device infection [Recovered/Resolved]
  - Intentional product misuse [Unknown]
